FAERS Safety Report 24910316 (Version 2)
Quarter: 2025Q1

REPORT INFORMATION
  Report Type: Report from Study
  Country: US (occurrence: US)
  Receive Date: 20250131
  Receipt Date: 20250228
  Transmission Date: 20250408
  Serious: Yes (Death, Other)
  Sender: BAYER HEALTHCARE PHARMACEUTICALS INC.
  Company Number: US-BAYER-2025A014955

PATIENT
  Age: 68 Year
  Sex: Female

DRUGS (4)
  1. ADEMPAS [Suspect]
     Active Substance: RIOCIGUAT
     Indication: Pulmonary arterial hypertension
  2. ADEMPAS [Suspect]
     Active Substance: RIOCIGUAT
     Indication: Pulmonary arterial hypertension
     Dosage: 2 MG, TID
     Route: 048
     Dates: start: 202302
  3. OPSUMIT [Concomitant]
     Active Substance: MACITENTAN
  4. TYVASO [Concomitant]
     Active Substance: TREPROSTINIL

REACTIONS (2)
  - Death [Fatal]
  - Illness [None]

NARRATIVE: CASE EVENT DATE: 20250129
